FAERS Safety Report 9739073 (Version 1)
Quarter: 2013Q4

REPORT INFORMATION
  Report Type: Spontaneous
  Country: US (occurrence: US)
  Receive Date: 20131209
  Receipt Date: 20131209
  Transmission Date: 20140711
  Serious: Yes (Hospitalization)
  Sender: FDA-Public Use
  Company Number: US-BAYER-2013-148587

PATIENT
  Age: 36 Year
  Sex: Female

DRUGS (4)
  1. YAZ [Suspect]
  2. WELLBUTRIN XL [Concomitant]
  3. PROPRANOLOL [Concomitant]
  4. PRILOSEC [Concomitant]

REACTIONS (2)
  - Pulmonary embolism [None]
  - Deep vein thrombosis [None]
